FAERS Safety Report 4506991-2 (Version None)
Quarter: 2005Q1

REPORT INFORMATION
  Report Type: 
  Country: None (occurrence: None)
  Receive Date: 20041025
  Receipt Date: 20040723
  Transmission Date: 20050727
  Serious: Yes (Hospitalization)
  Sender: FDA-Public Use
  Company Number: US-JNJFOC-20040706833

PATIENT
  Age: 80 Year
  Sex: Female

DRUGS (8)
  1. INFLIXIMAB (INFLIXIMAB, RECOMBINANT) LYOPHILIZED POWDER [Suspect]
     Indication: RHEUMATOID ARTHRITIS
  2. METHOTREXATE [Concomitant]
  3. FOLIC ACID [Concomitant]
  4. CELEBREX [Concomitant]
  5. DIURIL (CHLOROTHIAZIDE) [Concomitant]
  6. ASPIRIN (ACETYLSALICYLC ACID) [Concomitant]
  7. SYNTHROID [Concomitant]
  8. CALTRATE (CALCIUM CARBONATE) TABLETS [Concomitant]

REACTIONS (1)
  - PNEUMONIA BACTERIAL [None]
